FAERS Safety Report 8110687 (Version 70)
Quarter: 2021Q4

REPORT INFORMATION
  Report Type: Report from Study
  Country: CA (occurrence: CA)
  Receive Date: 20110829
  Receipt Date: 20211018
  Transmission Date: 20220303
  Serious: Yes (Hospitalization, Other)
  Sender: FDA-Public Use
  Company Number: PHHY2011CA54477

PATIENT
  Age: 61 Year
  Sex: Male

DRUGS (10)
  1. SANDOSTATIN LAR DEPOT [Suspect]
     Active Substance: OCTREOTIDE ACETATE
     Indication: Acromegaly
     Dosage: 10 MG, QMO
     Route: 030
     Dates: start: 2006
  2. SANDOSTATIN LAR DEPOT [Suspect]
     Active Substance: OCTREOTIDE ACETATE
     Dosage: 20 MG, QMO (VIAL)
     Route: 030
     Dates: start: 20110519
  3. SANDOSTATIN LAR DEPOT [Suspect]
     Active Substance: OCTREOTIDE ACETATE
     Dosage: UNK
     Route: 065
     Dates: start: 2011
  4. SANDOSTATIN LAR DEPOT [Suspect]
     Active Substance: OCTREOTIDE ACETATE
     Dosage: 20 MG, QMO
     Route: 030
     Dates: start: 20151005
  5. DDAVP//DESMOPRESSIN [Concomitant]
     Indication: Product used for unknown indication
     Dosage: UNK, QD
     Route: 048
  6. HYDROCORTISONE [Concomitant]
     Active Substance: HYDROCORTISONE
     Indication: Product used for unknown indication
     Dosage: UNK
     Route: 048
  7. CORTEC [Concomitant]
     Indication: Product used for unknown indication
     Dosage: UNK UNK, BID
     Route: 065
  8. BETAHISTINE [Concomitant]
     Active Substance: BETAHISTINE
     Indication: Product used for unknown indication
     Dosage: UNK
     Route: 065
  9. ACTONEL [Concomitant]
     Active Substance: RISEDRONATE SODIUM
     Indication: Product used for unknown indication
     Dosage: UNK
     Route: 065
  10. PANTOPRAZOLE MAGNESIUM [Concomitant]
     Active Substance: PANTOPRAZOLE MAGNESIUM
     Indication: Product used for unknown indication
     Dosage: UNK
     Route: 065

REACTIONS (35)
  - Endocrine neoplasm [Unknown]
  - Blood sodium decreased [Recovered/Resolved]
  - Hypopituitarism [Recovered/Resolved]
  - Diabetes insipidus [Recovered/Resolved]
  - Hernia [Unknown]
  - Cervical vertebral fracture [Unknown]
  - Fall [Unknown]
  - Blood pressure increased [Unknown]
  - Meniere^s disease [Recovered/Resolved]
  - Gastroenteritis viral [Unknown]
  - Blood pressure fluctuation [Unknown]
  - Nasopharyngitis [Recovering/Resolving]
  - Emotional disorder [Unknown]
  - Haemoglobin decreased [Unknown]
  - Platelet count decreased [Unknown]
  - Malaise [Unknown]
  - Ear pain [Unknown]
  - Ear discomfort [Unknown]
  - Body temperature decreased [Unknown]
  - Vertigo [Unknown]
  - Vision blurred [Unknown]
  - Feeling abnormal [Unknown]
  - Fatigue [Unknown]
  - Rhinorrhoea [Unknown]
  - Cholelithiasis [Unknown]
  - Heart rate decreased [Unknown]
  - Asthenia [Unknown]
  - Injection site haemorrhage [Unknown]
  - Nausea [Not Recovered/Not Resolved]
  - Dizziness [Recovered/Resolved]
  - Headache [Unknown]
  - Vomiting [Unknown]
  - Dizziness [Unknown]
  - Constipation [Not Recovered/Not Resolved]
  - Diarrhoea [Not Recovered/Not Resolved]

NARRATIVE: CASE EVENT DATE: 20140120
